FAERS Safety Report 5136008-0 (Version None)
Quarter: 2006Q4

REPORT INFORMATION
  Report Type: 
  Country: None (occurrence: None)
  Receive Date: 20061020
  Receipt Date: 20061006
  Transmission Date: 20070319
  Serious: Yes (Life-Threatening, Other)
  Sender: FDA-Public Use
  Company Number: 2006EN000183

PATIENT
  Age: 44 Year
  Sex: Male

DRUGS (1)
  1. ABELCET [Suspect]
     Indication: LUNG TRANSPLANT
     Dosage: 100 MG; INH
     Route: 055
     Dates: start: 20060929, end: 20060929

REACTIONS (1)
  - SUPRAVENTRICULAR TACHYCARDIA [None]
